FAERS Safety Report 14058049 (Version 2)
Quarter: 2017Q4

REPORT INFORMATION
  Report Type: Report from Study
  Country: CA (occurrence: CA)
  Receive Date: 20171006
  Receipt Date: 20171031
  Transmission Date: 20180321
  Serious: Yes (Hospitalization)
  Sender: FDA-Public Use
  Company Number: CA-GILEAD-2017-0297003

PATIENT
  Age: 72 Year
  Sex: Male
  Weight: 83 kg

DRUGS (2)
  1. IBAVYR [Suspect]
     Active Substance: RIBAVIRIN
     Indication: CHRONIC HEPATITIS C
     Dosage: UNK
     Route: 048
     Dates: start: 20170808
  2. SOFOSBUVIR W/VELPATASVIR [Suspect]
     Active Substance: SOFOSBUVIR\VELPATASVIR
     Indication: CHRONIC HEPATITIS C
     Dosage: 1 DF, UNK
     Route: 048
     Dates: start: 20170808

REACTIONS (3)
  - Hypotension [Recovered/Resolved]
  - Constipation [Recovered/Resolved]
  - Vision blurred [Recovered/Resolved]
